FAERS Safety Report 15418110 (Version 1)
Quarter: 2018Q3

REPORT INFORMATION
  Report Type: Other
  Country: JP (occurrence: JP)
  Receive Date: 20180924
  Receipt Date: 20180924
  Transmission Date: 20181010
  Serious: Yes (Death)
  Sender: FDA-Public Use
  Company Number: JP-ACTELION-A-CH2018-179031

PATIENT
  Age: 25 Year
  Sex: Male

DRUGS (1)
  1. MIGLUSTAT. [Suspect]
     Active Substance: MIGLUSTAT
     Indication: NIEMANN-PICK DISEASE
     Route: 048

REACTIONS (4)
  - Apallic syndrome [Fatal]
  - Pneumonia [Unknown]
  - Drug ineffective [Unknown]
  - Ileus [Unknown]
